FAERS Safety Report 25447657 (Version 1)
Quarter: 2025Q2

REPORT INFORMATION
  Report Type: Spontaneous
  Country: US (occurrence: US)
  Receive Date: 20250617
  Receipt Date: 20250617
  Transmission Date: 20250716
  Serious: Yes (Other)
  Sender: AMGEN
  Company Number: US-AMGEN-USASP2025114334

PATIENT
  Age: 66 Year
  Sex: Female

DRUGS (6)
  1. XGEVA [Suspect]
     Active Substance: DENOSUMAB
     Indication: Product used for unknown indication
     Route: 065
  2. GILOTRIF [Suspect]
     Active Substance: AFATINIB
     Indication: Non-small cell lung cancer
     Dosage: 40 MILLIGRAM, QD (40 MILLIGRAMS, 1 IN 1 DAY)
     Route: 048
     Dates: start: 202308
  3. GILOTRIF [Suspect]
     Active Substance: AFATINIB
     Indication: Lung neoplasm malignant
  4. AUGMENTIN [Concomitant]
     Active Substance: AMOXICILLIN\CLAVULANATE POTASSIUM
  5. ELIQUIS [Concomitant]
     Active Substance: APIXABAN
  6. SIMVASTATIN [Concomitant]
     Active Substance: SIMVASTATIN

REACTIONS (6)
  - Metastases to spine [Unknown]
  - Osteonecrosis of jaw [Not Recovered/Not Resolved]
  - Nausea [Unknown]
  - Diarrhoea [Recovered/Resolved]
  - Rash [Not Recovered/Not Resolved]
  - Stomatitis [Unknown]

NARRATIVE: CASE EVENT DATE: 20240701
